FAERS Safety Report 24339329 (Version 1)
Quarter: 2024Q3

REPORT INFORMATION
  Report Type: Spontaneous
  Country: DK (occurrence: DK)
  Receive Date: 20240919
  Receipt Date: 20240919
  Transmission Date: 20241016
  Serious: Yes (Other)
  Sender: UCB
  Company Number: DK-UCBSA-2024047917

PATIENT
  Age: 30 Year
  Sex: Female

DRUGS (2)
  1. LEVETIRACETAM [Suspect]
     Active Substance: LEVETIRACETAM
     Indication: Epilepsy
     Dosage: TOTAL DAILY DOSE: 1000 MG. UNKNOWN IF DIVIDED IN SEVERAL DOSES. STRENGTH: UNKNOWN
     Route: 048
     Dates: start: 20220622, end: 20240813
  2. LEVETIRACETAM [Suspect]
     Active Substance: LEVETIRACETAM
     Dosage: TOTAL DAILY DOSE: 1250 MG
     Route: 048
     Dates: start: 20240814

REACTIONS (3)
  - Abortion induced [Unknown]
  - Maternal exposure during pregnancy [Unknown]
  - Maternal exposure before pregnancy [Unknown]

NARRATIVE: CASE EVENT DATE: 20240101
